FAERS Safety Report 21686443 (Version 1)
Quarter: 2022Q4

REPORT INFORMATION
  Report Type: Spontaneous
  Country: US (occurrence: US)
  Receive Date: 20221206
  Receipt Date: 20221206
  Transmission Date: 20230113
  Serious: No
  Sender: FDA-Public Use
  Company Number: US-BRISTOL-MYERS SQUIBB COMPANY-2022-148114

PATIENT
  Age: 63 Year
  Sex: Male
  Weight: 83.91 kg

DRUGS (3)
  1. ELIQUIS [Suspect]
     Active Substance: APIXABAN
     Indication: Thrombosis prophylaxis
     Dosage: DOSE : 10 MG BID X 7 DAYS; THEN 5 MG;     FREQ : BID
     Route: 048
     Dates: start: 202211
  2. ELIQUIS [Suspect]
     Active Substance: APIXABAN
     Dosage: TWO 5 MG TABLETS BY MOUTH TWICE A DAY FOR FIVE MORE DAYS, THEN TO TAKE ONE TABLET BY MOUTH TWICE A D
     Route: 048
     Dates: start: 202211
  3. HYDRALAZINE [Concomitant]
     Active Substance: HYDRALAZINE HYDROCHLORIDE
     Indication: Blood pressure increased
     Route: 065

REACTIONS (3)
  - Productive cough [Unknown]
  - Influenza [Unknown]
  - Haemoptysis [Unknown]
